FAERS Safety Report 16204637 (Version 2)
Quarter: 2019Q4

REPORT INFORMATION
  Report Type: Spontaneous
  Country: US (occurrence: US)
  Receive Date: 20190416
  Receipt Date: 20191008
  Transmission Date: 20200122
  Serious: Yes (Other)
  Sender: FDA-Public Use
  Company Number: US-ASTRAZENECA-2019SE54432

PATIENT
  Age: 23503 Day
  Sex: Male

DRUGS (64)
  1. NEXIUM [Suspect]
     Active Substance: ESOMEPRAZOLE MAGNESIUM
     Indication: GASTROOESOPHAGEAL REFLUX DISEASE
     Route: 048
     Dates: start: 20070129
  2. METOPROLOL TARTRATE. [Concomitant]
     Active Substance: METOPROLOL TARTRATE
  3. CIPROFLOXACIN. [Concomitant]
     Active Substance: CIPROFLOXACIN
  4. ATORVASTATIN [Concomitant]
     Active Substance: ATORVASTATIN
  5. FUROSEMIDE. [Concomitant]
     Active Substance: FUROSEMIDE
  6. MELOXICAM. [Concomitant]
     Active Substance: MELOXICAM
  7. LEVOTHYROXINE. [Concomitant]
     Active Substance: LEVOTHYROXINE
  8. PNEUMOVAX 23 [Concomitant]
     Active Substance: PNEUMOCOCCAL VACCINE, POLYVALENT 23
  9. NEXIUM [Suspect]
     Active Substance: ESOMEPRAZOLE MAGNESIUM
     Indication: GASTROOESOPHAGEAL REFLUX DISEASE
     Route: 048
     Dates: start: 20150902
  10. FLUVASTATIN [Concomitant]
     Active Substance: FLUVASTATIN SODIUM
  11. FLUCONAZOLE. [Concomitant]
     Active Substance: FLUCONAZOLE
  12. MEPERITAB [Concomitant]
     Active Substance: MEPERIDINE HYDROCHLORIDE
  13. PROMETHAZINE [Concomitant]
     Active Substance: PROMETHAZINE HYDROCHLORIDE
  14. SINGULAIR [Concomitant]
     Active Substance: MONTELUKAST SODIUM
  15. TETRACYCLINE [Concomitant]
     Active Substance: TETRACYCLINE
  16. POLYETHYLENE GLYCOL [Concomitant]
     Active Substance: POLYETHYLENE GLYCOLS
  17. TAMSULOSIN [Concomitant]
     Active Substance: TAMSULOSIN
  18. SULFAMETHOXAZOLE TRIMETHOPRIM [Concomitant]
     Active Substance: SULFAMETHOXAZOLE\TRIMETHOPRIM
  19. NITROSTAT [Concomitant]
     Active Substance: NITROGLYCERIN
  20. KETOROLAC [Concomitant]
     Active Substance: KETOROLAC TROMETHAMINE
  21. TRAMADOL. [Concomitant]
     Active Substance: TRAMADOL
  22. LOPRESSOR [Concomitant]
     Active Substance: METOPROLOL TARTRATE
  23. SYNTHROID [Concomitant]
     Active Substance: LEVOTHYROXINE SODIUM
  24. NEXIUM [Suspect]
     Active Substance: ESOMEPRAZOLE MAGNESIUM
     Indication: GASTROOESOPHAGEAL REFLUX DISEASE
     Route: 048
     Dates: start: 20140929
  25. CARTIA [Concomitant]
  26. MONTELUKAST [Concomitant]
     Active Substance: MONTELUKAST SODIUM
  27. DIAZEPAM. [Concomitant]
     Active Substance: DIAZEPAM
  28. LOTEMAX [Concomitant]
     Active Substance: LOTEPREDNOL ETABONATE
  29. ZETIA [Concomitant]
     Active Substance: EZETIMIBE
  30. LEVOXYL [Concomitant]
     Active Substance: LEVOTHYROXINE SODIUM
  31. HYDROCHLOROTHIAZIDE. [Concomitant]
     Active Substance: HYDROCHLOROTHIAZIDE
  32. MONTELUKAST [Concomitant]
     Active Substance: MONTELUKAST SODIUM
  33. NEXIUM [Suspect]
     Active Substance: ESOMEPRAZOLE MAGNESIUM
     Indication: GASTROOESOPHAGEAL REFLUX DISEASE
     Route: 048
     Dates: start: 200704, end: 201606
  34. NEXIUM [Suspect]
     Active Substance: ESOMEPRAZOLE MAGNESIUM
     Indication: GASTROOESOPHAGEAL REFLUX DISEASE
     Route: 048
     Dates: start: 20150203
  35. LEVOTHYROXINE. [Concomitant]
     Active Substance: LEVOTHYROXINE
  36. OXYCODONE ACETAMINOPHEN [Concomitant]
     Active Substance: ACETAMINOPHEN\OXYCODONE HYDROCHLORIDE
  37. DILTIAZEM. [Concomitant]
     Active Substance: DILTIAZEM
  38. AMOXICILLINE [Concomitant]
     Active Substance: AMOXICILLIN
  39. PRAVASTATIN. [Concomitant]
     Active Substance: PRAVASTATIN
  40. OXAPROZIN. [Concomitant]
     Active Substance: OXAPROZIN
  41. MEPROZINE [Concomitant]
  42. DULOXETINE. [Concomitant]
     Active Substance: DULOXETINE
  43. CYCLOBENZAPRINE. [Concomitant]
     Active Substance: CYCLOBENZAPRINE
  44. MECLIZINE [Concomitant]
     Active Substance: MECLIZINE HYDROCHLORIDE
  45. HYDROXYZINE [Concomitant]
     Active Substance: HYDROXYZINE HYDROCHLORIDE
  46. TAZTIA XT [Concomitant]
     Active Substance: DILTIAZEM HYDROCHLORIDE
  47. CYCLOBENZAPRINE. [Concomitant]
     Active Substance: CYCLOBENZAPRINE
  48. CEPHALEXIN. [Concomitant]
     Active Substance: CEPHALEXIN
  49. AMLODIPINE BESYLATE. [Concomitant]
     Active Substance: AMLODIPINE BESYLATE
  50. PROPOXYPHENE. [Concomitant]
     Active Substance: PROPOXYPHENE
  51. VITAMIN D [Concomitant]
     Active Substance: VITAMIN D NOS
  52. SIMVASTATIN. [Concomitant]
     Active Substance: SIMVASTATIN
  53. GABAPENTIN. [Concomitant]
     Active Substance: GABAPENTIN
  54. DOXYCYCLINE HYCLATE. [Concomitant]
     Active Substance: DOXYCYCLINE HYCLATE
  55. PLAVIX [Concomitant]
     Active Substance: CLOPIDOGREL BISULFATE
  56. AMLODIPINE [Concomitant]
     Active Substance: AMLODIPINE BESYLATE
  57. NOVOLOG [Concomitant]
     Active Substance: INSULIN ASPART
  58. TYLENOL [Concomitant]
     Active Substance: ACETAMINOPHEN
  59. NEXIUM [Suspect]
     Active Substance: ESOMEPRAZOLE MAGNESIUM
     Indication: GASTROOESOPHAGEAL REFLUX DISEASE
     Route: 048
     Dates: start: 20150310
  60. DULOXETINE. [Concomitant]
     Active Substance: DULOXETINE
  61. ALREX [Concomitant]
     Active Substance: LOTEPREDNOL ETABONATE
  62. AGGRENOX [Concomitant]
     Active Substance: ASPIRIN\DIPYRIDAMOLE
  63. CIPROFLOXACIN. [Concomitant]
     Active Substance: CIPROFLOXACIN
  64. SEPTRA [Concomitant]
     Active Substance: SULFAMETHOXAZOLE\TRIMETHOPRIM

REACTIONS (3)
  - Renal failure [Unknown]
  - Acute kidney injury [Unknown]
  - Chronic kidney disease [Not Recovered/Not Resolved]

NARRATIVE: CASE EVENT DATE: 20130514
